FAERS Safety Report 8795368 (Version 3)
Quarter: 2015Q2

REPORT INFORMATION
  Report Type: Report from Study
  Country: US (occurrence: US)
  Receive Date: 20120917
  Receipt Date: 20150629
  Transmission Date: 20150821
  Serious: Yes (Death)
  Sender: FDA-Public Use
  Company Number: US-ROCHE-1129446

PATIENT
  Age: 36 Year
  Sex: Male
  Weight: 55 kg

DRUGS (13)
  1. DEXAMETHASONE. [Concomitant]
     Active Substance: DEXAMETHASONE
     Route: 065
  2. BENADRYL [Concomitant]
     Active Substance: DIPHENHYDRAMINE HYDROCHLORIDE
     Route: 042
  3. AVASTIN [Suspect]
     Active Substance: BEVACIZUMAB
     Route: 042
  4. AVASTIN [Suspect]
     Active Substance: BEVACIZUMAB
     Route: 042
  5. IRINOTECAN [Concomitant]
     Active Substance: IRINOTECAN
     Route: 065
  6. ATIVAN [Concomitant]
     Active Substance: LORAZEPAM
     Route: 042
  7. DEXAMETHASONE. [Concomitant]
     Active Substance: DEXAMETHASONE
     Route: 065
  8. ATROPINE [Concomitant]
     Active Substance: ATROPINE
  9. KEPPRA [Concomitant]
     Active Substance: LEVETIRACETAM
     Dosage: 500/3 UNIT NOT REPORTED
     Route: 065
  10. AVASTIN [Suspect]
     Active Substance: BEVACIZUMAB
     Indication: BRAIN NEOPLASM MALIGNANT
     Route: 042
     Dates: start: 20070110, end: 20071103
  11. AVASTIN [Suspect]
     Active Substance: BEVACIZUMAB
     Indication: GLIOBLASTOMA
     Route: 042
  12. ZOFRAN [Concomitant]
     Active Substance: ONDANSETRON HYDROCHLORIDE
     Route: 065
  13. PHENERGAN [Concomitant]
     Active Substance: PROMETHAZINE HYDROCHLORIDE
     Route: 042

REACTIONS (6)
  - Anxiety [Unknown]
  - Dehydration [Unknown]
  - Abdominal pain [Recovered/Resolved]
  - Neoplasm progression [Fatal]
  - Blood pressure increased [Unknown]
  - Off label use [Unknown]

NARRATIVE: CASE EVENT DATE: 20090420
